FAERS Safety Report 6649673-3 (Version None)
Quarter: 2010Q1

REPORT INFORMATION
  Report Type: 
  Country: None (occurrence: None)
  Receive Date: 20100324
  Receipt Date: 20100324
  Transmission Date: 20100710
  Serious: No
  Sender: FDA-Public Use
  Company Number: None

PATIENT
  Age: 88 Year
  Sex: Male
  Weight: 72.73 kg

DRUGS (1)
  1. LISINOPRIL [Suspect]
     Dosage: 40 MG EVERY DAY PO
     Route: 048
     Dates: start: 20091213, end: 20091216

REACTIONS (4)
  - ASTHENIA [None]
  - DIZZINESS [None]
  - PRESYNCOPE [None]
  - SYNCOPE [None]
